FAERS Safety Report 16380899 (Version 1)
Quarter: 2019Q2

REPORT INFORMATION
  Report Type: Other
  Country: GB (occurrence: GB)
  Receive Date: 20190602
  Receipt Date: 20190602
  Transmission Date: 20190711
  Serious: Yes (Other)
  Sender: FDA-Public Use
  Company Number: GB-APOTEX-2019AP015230

PATIENT
  Age: 4 Year
  Sex: Male

DRUGS (2)
  1. VENTOLIN [Concomitant]
     Active Substance: ALBUTEROL SULFATE
     Indication: PRODUCT USED FOR UNKNOWN INDICATION
     Dosage: UNK
     Route: 065
  2. MONTELUKAST [Suspect]
     Active Substance: MONTELUKAST SODIUM
     Indication: ASTHMA
     Dosage: UNK
     Route: 048
     Dates: start: 20180830, end: 20180907

REACTIONS (5)
  - Affect lability [Unknown]
  - Personality change [Recovering/Resolving]
  - Aggression [Unknown]
  - Anxiety [Unknown]
  - Anger [Recovered/Resolved]

NARRATIVE: CASE EVENT DATE: 20180901
